FAERS Safety Report 16175500 (Version 11)
Quarter: 2020Q3

REPORT INFORMATION
  Report Type: Report from Study
  Country: None (occurrence: US)
  Receive Date: 20190409
  Receipt Date: 20200824
  Transmission Date: 20201102
  Serious: Yes (Hospitalization, Other)
  Sender: FDA-Public Use
  Company Number: US-ABBVIE-19K-163-2734734-00

PATIENT
  Sex: Female
  Weight: 91.71 kg

DRUGS (9)
  1. HUMIRA [Suspect]
     Active Substance: ADALIMUMAB
     Indication: HIDRADENITIS
     Route: 058
     Dates: end: 2001
  2. HUMIRA [Suspect]
     Active Substance: ADALIMUMAB
     Route: 058
  3. HUMIRA [Suspect]
     Active Substance: ADALIMUMAB
     Indication: HIDRADENITIS
     Route: 058
     Dates: end: 20191230
  4. HUMIRA [Suspect]
     Active Substance: ADALIMUMAB
     Route: 058
     Dates: start: 20200330
  5. HUMIRA [Suspect]
     Active Substance: ADALIMUMAB
     Route: 058
  6. HUMIRA [Suspect]
     Active Substance: ADALIMUMAB
     Route: 058
  7. HUMIRA [Suspect]
     Active Substance: ADALIMUMAB
     Route: 058
  8. HUMIRA [Suspect]
     Active Substance: ADALIMUMAB
     Route: 058
  9. HUMIRA [Suspect]
     Active Substance: ADALIMUMAB
     Route: 058

REACTIONS (59)
  - Polyp [Recovering/Resolving]
  - Pelvic exenteration [Unknown]
  - Gastrointestinal disorder [Unknown]
  - Sinus disorder [Unknown]
  - Weight increased [Recovering/Resolving]
  - Musculoskeletal disorder [Unknown]
  - Influenza like illness [Unknown]
  - Nasopharyngitis [Unknown]
  - Bacterial infection [Unknown]
  - Rash macular [Unknown]
  - Gait inability [Unknown]
  - Motion sickness [Unknown]
  - Feeling abnormal [Unknown]
  - Balance disorder [Unknown]
  - Musculoskeletal stiffness [Unknown]
  - Stress [Unknown]
  - Unevaluable event [Unknown]
  - Conjunctivitis [Unknown]
  - Peripheral swelling [Unknown]
  - Osteoarthritis [Unknown]
  - Chills [Unknown]
  - Fibromyalgia [Not Recovered/Not Resolved]
  - Diabetes mellitus [Not Recovered/Not Resolved]
  - Hidradenitis [Recovered/Resolved]
  - Arthralgia [Unknown]
  - Oropharyngeal pain [Unknown]
  - Hordeolum [Unknown]
  - Respiratory disorder [Unknown]
  - Mobility decreased [Unknown]
  - Hypertension [Unknown]
  - Therapeutic response shortened [Recovering/Resolving]
  - Diarrhoea [Unknown]
  - Spinal operation [Recovering/Resolving]
  - Muscle rigidity [Unknown]
  - Burns second degree [Unknown]
  - Hyperhidrosis [Unknown]
  - Otorrhoea [Unknown]
  - Dyspnoea [Unknown]
  - Pyrexia [Unknown]
  - Abdominal mass [Recovered/Resolved]
  - Fatigue [Recovering/Resolving]
  - Cyst [Not Recovered/Not Resolved]
  - Rotator cuff syndrome [Unknown]
  - Blood glucose decreased [Unknown]
  - Post procedural complication [Unknown]
  - Lipoedema [Unknown]
  - Depression [Unknown]
  - Nervousness [Unknown]
  - Arthritis [Not Recovered/Not Resolved]
  - Hidradenitis [Not Recovered/Not Resolved]
  - Ear pain [Unknown]
  - Gait disturbance [Unknown]
  - Hot flush [Unknown]
  - Vitamin D decreased [Unknown]
  - Feeling cold [Unknown]
  - Neuropathy peripheral [Unknown]
  - Gastrooesophageal reflux disease [Unknown]
  - Furuncle [Unknown]
  - Discomfort [Unknown]

NARRATIVE: CASE EVENT DATE: 2018
